FAERS Safety Report 6082615-0 (Version None)
Quarter: 2009Q1

REPORT INFORMATION
  Report Type: 
  Country: None (occurrence: None)
  Receive Date: 20090202
  Receipt Date: 20070427
  Transmission Date: 20090719
  Serious: Yes (Life-Threatening, Hospitalization)
  Sender: FDA-Public Use
  Company Number: 263194

PATIENT
  Sex: Male

DRUGS (2)
  1. NOVOLOG [Suspect]
     Indication: DIABETES MELLITUS
     Dosage: SUBCUTANEOUS; 8 LU, SINGLE (1ST INJECTION AT 6:30PM, SECOND INJECTION AT AROUND 7:35 PM), SUBCUTANEO
     Route: 058
     Dates: start: 20060710, end: 20060710
  2. ALTACE [Concomitant]

REACTIONS (4)
  - DEVICE FAILURE [None]
  - HYPERGLYCAEMIA [None]
  - HYPOGLYCAEMIA [None]
  - OVERDOSE [None]
